FAERS Safety Report 5853712-7 (Version None)
Quarter: 2008Q3

REPORT INFORMATION
  Report Type: 
  Country: None (occurrence: None)
  Receive Date: 20080822
  Receipt Date: 20080820
  Transmission Date: 20090109
  Serious: Yes (Death)
  Sender: FDA-Public Use
  Company Number: PHEH2008US06271

PATIENT
  Sex: Male

DRUGS (2)
  1. GLEEVEC [Suspect]
     Indication: CHRONIC MYELOID LEUKAEMIA
     Dosage: 600 MG, QD
     Route: 048
     Dates: start: 20080409
  2. GLEEVEC [Suspect]
     Indication: MASTOCYTIC LEUKAEMIA

REACTIONS (2)
  - MALIGNANT NEOPLASM PROGRESSION [None]
  - MASTOCYTIC LEUKAEMIA [None]
